FAERS Safety Report 14568306 (Version 16)
Quarter: 2018Q3

REPORT INFORMATION
  Report Type: Report from Study
  Country: DE (occurrence: DE)
  Receive Date: 20180223
  Receipt Date: 20180910
  Transmission Date: 20181010
  Serious: Yes (Death, Hospitalization, Other)
  Sender: FDA-Public Use
  Company Number: DE-BRISTOL-MYERS SQUIBB COMPANY-BMS-2018-008338

PATIENT
  Age: 80 Year
  Sex: Male

DRUGS (9)
  1. METOCLOPRAMIDE. [Concomitant]
     Active Substance: METOCLOPRAMIDE
     Indication: NEOPLASM PROGRESSION
     Dosage: UNK, PRN
     Route: 065
  2. MACROGOL [Concomitant]
     Active Substance: POLYETHYLENE GLYCOLS
     Indication: PROPHYLAXIS
     Dosage: UNK, PRN
     Route: 065
  3. CALCIUM SANDOZ D [Concomitant]
     Indication: PRODUCT USED FOR UNKNOWN INDICATION
     Dosage: 500 MG, UNK
     Route: 065
  4. METAMIZOLE [Concomitant]
     Active Substance: METAMIZOLE
     Indication: NEOPLASM PROGRESSION
     Dosage: 4 MG, UNK
     Route: 065
  5. PROSTAMED                          /01018101/ [Concomitant]
     Indication: PRODUCT USED FOR UNKNOWN INDICATION
     Dosage: UNK
     Route: 065
  6. NIVOLUMAB [Suspect]
     Active Substance: NIVOLUMAB
     Indication: NON-SMALL CELL LUNG CANCER
     Dosage: 3 MG/KG, Q2WK
     Route: 042
     Dates: start: 20171207, end: 20180404
  7. EXFORGE HCT [Concomitant]
     Active Substance: AMLODIPINE BESYLATE\HYDROCHLOROTHIAZIDE\VALSARTAN
     Indication: CEREBROVASCULAR DISORDER
     Dosage: 0.50 MG, UNK
     Route: 065
  8. VERAPAMIL [Concomitant]
     Active Substance: VERAPAMIL HYDROCHLORIDE
     Indication: CEREBROVASCULAR DISORDER
     Dosage: 120 MG, UNK
     Route: 065
  9. TAMSULOSIN [Concomitant]
     Active Substance: TAMSULOSIN
     Indication: PRODUCT USED FOR UNKNOWN INDICATION
     Dosage: UNK
     Route: 065

REACTIONS (20)
  - Pulmonary mass [Not Recovered/Not Resolved]
  - Asthenia [Recovered/Resolved]
  - Metastases to chest wall [Not Recovered/Not Resolved]
  - Vocal cord paresis [Recovered/Resolved with Sequelae]
  - General physical health deterioration [Not Recovered/Not Resolved]
  - Pleural effusion [Not Recovered/Not Resolved]
  - Nasopharyngitis [Recovered/Resolved with Sequelae]
  - Odynophagia [Recovered/Resolved with Sequelae]
  - C-reactive protein increased [Recovering/Resolving]
  - Weight decreased [Not Recovered/Not Resolved]
  - Malignant neoplasm progression [Fatal]
  - Metastases to lymph nodes [Not Recovered/Not Resolved]
  - Lymphadenopathy [Recovered/Resolved with Sequelae]
  - Leukopenia [Unknown]
  - Metastases to bone marrow [Not Recovered/Not Resolved]
  - Metastatic neoplasm [Not Recovered/Not Resolved]
  - Paresis [Unknown]
  - Recurrent cancer [Not Recovered/Not Resolved]
  - Musculoskeletal pain [Recovered/Resolved]
  - Decreased appetite [Not Recovered/Not Resolved]

NARRATIVE: CASE EVENT DATE: 20180104
